FAERS Safety Report 15734552 (Version 1)
Quarter: 2018Q4

REPORT INFORMATION
  Report Type: Spontaneous
  Country: US (occurrence: US)
  Receive Date: 20181218
  Receipt Date: 20181218
  Transmission Date: 20190205
  Serious: Yes (Other)
  Sender: FDA-Public Use
  Company Number: US-OTSUKA-2018_010459

PATIENT
  Sex: Female

DRUGS (2)
  1. ABILIFY [Suspect]
     Active Substance: ARIPIPRAZOLE
     Indication: ANXIETY
     Dosage: 5 MG, QD
     Route: 065
     Dates: end: 201707
  2. ABILIFY [Suspect]
     Active Substance: ARIPIPRAZOLE
     Indication: MAJOR DEPRESSION
     Dosage: 2 MG, QD
     Route: 065
     Dates: start: 200812

REACTIONS (8)
  - Bankruptcy [Unknown]
  - Product use in unapproved indication [Unknown]
  - Gastrointestinal surgery [Unknown]
  - Compulsive shopping [Recovered/Resolved]
  - Economic problem [Unknown]
  - Eating disorder [Recovered/Resolved]
  - Hypersexuality [Unknown]
  - Weight increased [Unknown]

NARRATIVE: CASE EVENT DATE: 200901
